FAERS Safety Report 4411903-6 (Version None)
Quarter: 2004Q3

REPORT INFORMATION
  Report Type: 
  Country: None (occurrence: None)
  Receive Date: 20040730
  Receipt Date: 20031205
  Transmission Date: 20050211
  Serious: No
  Sender: FDA-Public Use
  Company Number: US-GLAXOSMITHKLINE-A0442160A

PATIENT
  Age: 73 Year
  Sex: Female

DRUGS (3)
  1. ZANTAC [Suspect]
     Dosage: 150MG TWICE PER DAY
     Route: 048
     Dates: start: 20010101
  2. NYSTATIN [Concomitant]
     Route: 065
  3. TOPROL-XL [Concomitant]

REACTIONS (1)
  - VISION BLURRED [None]
